FAERS Safety Report 7758942-5 (Version None)
Quarter: 2011Q3

REPORT INFORMATION
  Report Type: 
  Country: None (occurrence: None)
  Receive Date: 20110916
  Receipt Date: 20110916
  Transmission Date: 20111222
  Serious: Yes (Life-Threatening)
  Sender: FDA-Public Use
  Company Number: None

PATIENT
  Age: 55 Year
  Sex: Female
  Weight: 76.8 kg

DRUGS (4)
  1. CYMBALTA [Suspect]
     Indication: BIPOLAR I DISORDER
     Dosage: MG EVERY DAY PO
     Route: 048
     Dates: start: 20110708, end: 20110729
  2. CYMBALTA [Suspect]
     Indication: OSTEOARTHRITIS
     Dosage: MG EVERY DAY PO
     Route: 048
     Dates: start: 20110708, end: 20110729
  3. CYMBALTA [Suspect]
     Indication: NEUROPATHY PERIPHERAL
     Dosage: MG EVERY DAY PO
     Route: 048
     Dates: start: 20110708, end: 20110729
  4. CYMBALTA [Suspect]
     Indication: SCHIZOAFFECTIVE DISORDER
     Dosage: MG EVERY DAY PO
     Route: 048
     Dates: start: 20110708, end: 20110729

REACTIONS (2)
  - ARTHRALGIA [None]
  - SUICIDAL IDEATION [None]
